FAERS Safety Report 8566118-7 (Version None)
Quarter: 2012Q3

REPORT INFORMATION
  Report Type: 
  Country: None (occurrence: None)
  Receive Date: 20120803
  Receipt Date: 20110811
  Transmission Date: 20120928
  Serious: No
  Sender: FDA-Public Use
  Company Number: US-ABBOTT-11P-163-0845592-00

PATIENT
  Sex: Male
  Weight: 102.15 kg

DRUGS (4)
  1. PLAVIX [Concomitant]
     Indication: PRODUCT USED FOR UNKNOWN INDICATION
  2. NIASPAN [Suspect]
     Indication: ARTERIOSCLEROSIS
  3. METOPROLOL TARTRATE [Concomitant]
     Indication: PRODUCT USED FOR UNKNOWN INDICATION
  4. FENOFIBRATE [Concomitant]
     Indication: PRODUCT USED FOR UNKNOWN INDICATION

REACTIONS (6)
  - HEART RATE INCREASED [None]
  - GENERALISED ERYTHEMA [None]
  - FLUSHING [None]
  - SKIN BURNING SENSATION [None]
  - GAIT DISTURBANCE [None]
  - MIDDLE INSOMNIA [None]
